FAERS Safety Report 12553854 (Version 3)
Quarter: 2016Q3

REPORT INFORMATION
  Report Type: Spontaneous
  Country: JP (occurrence: JP)
  Receive Date: 20160713
  Receipt Date: 20160908
  Transmission Date: 20161109
  Serious: Yes (Hospitalization, Other)
  Sender: FDA-Public Use
  Company Number: JP-JT-EVA201601509KERYXP-001

PATIENT
  Age: 45 Year
  Sex: Male

DRUGS (23)
  1. EPADEL                             /01682401/ [Concomitant]
     Active Substance: ICOSAPENT
     Indication: PERIPHERAL ARTERIAL OCCLUSIVE DISEASE
     Dosage: 1800 MG, BID
     Route: 048
     Dates: start: 20160511
  2. EPOETIN ALFA [Concomitant]
     Active Substance: ERYTHROPOIETIN
     Indication: NEPHROGENIC ANAEMIA
     Dosage: 3000 IU, 3 TIMES/WK
     Route: 042
     Dates: start: 20160622
  3. CONIEL [Concomitant]
     Active Substance: BENIDIPINE HYDROCHLORIDE
     Indication: HYPERTENSION
     Dosage: 8 MG, BID
     Route: 048
  4. LOXONIN [Concomitant]
     Active Substance: LOXOPROFEN SODIUM
     Indication: BACK PAIN
     Dosage: 180 MG, TID
     Route: 048
  5. ETIZOLAM [Concomitant]
     Active Substance: ETIZOLAM
     Indication: INSOMNIA
     Dosage: 1 DF, QD
     Route: 048
  6. BAYASPIRIN [Concomitant]
     Active Substance: ASPIRIN
     Indication: PERIPHERAL ARTERIAL OCCLUSIVE DISEASE
     Dosage: 100 MG, QD
     Route: 048
  7. RIONA [Suspect]
     Active Substance: FERRIC CITRATE ANHYDROUS
     Indication: HYPERPHOSPHATAEMIA
     Dosage: 1500 MG, QD
     Route: 048
     Dates: start: 20160307, end: 20160406
  8. FEBURIC [Concomitant]
     Active Substance: FEBUXOSTAT
     Indication: HYPERURICAEMIA
     Dosage: 10 MG, QD
     Route: 048
  9. MECOBALAMIN [Concomitant]
     Active Substance: METHYLCOBALAMIN
     Indication: NEUROPATHY PERIPHERAL
     Dosage: 1.5 MG, TID
     Route: 048
  10. TANKARU [Concomitant]
     Indication: MINERAL SUPPLEMENTATION
     Dosage: 500 MG, QD
     Route: 048
     Dates: start: 20160511
  11. SENNOSIDE                          /00571901/ [Concomitant]
     Active Substance: SENNOSIDES A AND B
     Indication: CONSTIPATION
     Dosage: 48 MG, QD
     Route: 048
  12. KAKKONTO                           /07985901/ [Concomitant]
     Indication: NEUROPATHY PERIPHERAL
     Dosage: UNK
     Route: 048
  13. LANDEL ZERIA [Concomitant]
     Indication: HYPERTENSION
     Dosage: 40 MG, QD
     Route: 048
     Dates: end: 20160709
  14. OLMETEC [Concomitant]
     Active Substance: OLMESARTAN MEDOXOMIL
     Indication: HYPERTENSION
     Dosage: 40 MG, BID
     Route: 048
  15. GASLON [Concomitant]
     Active Substance: IRSOGLADINE MALEATE
     Indication: CHRONIC GASTRITIS
     Dosage: 4 MG, BID
     Route: 048
  16. MYSLEE [Concomitant]
     Active Substance: ZOLPIDEM TARTRATE
     Indication: INSOMNIA
     Dosage: 1 DF, QD
     Route: 048
  17. RIONA [Suspect]
     Active Substance: FERRIC CITRATE ANHYDROUS
     Dosage: 2250 MG, QD
     Route: 048
     Dates: start: 20160407, end: 20160607
  18. RIONA [Suspect]
     Active Substance: FERRIC CITRATE ANHYDROUS
     Dosage: 3000 MG, QD
     Route: 048
     Dates: start: 20160608
  19. ALFAROL [Concomitant]
     Active Substance: ALFACALCIDOL
     Indication: HYPERPARATHYROIDISM SECONDARY
     Dosage: 0.25 MIRCRO-G, QD
     Route: 048
  20. CARDENALIN [Concomitant]
     Active Substance: DOXAZOSIN MESYLATE
     Indication: HYPERTENSION
     Dosage: 4 MG, BID
     Route: 048
     Dates: end: 20160709
  21. FESIN                              /00023550/ [Concomitant]
     Active Substance: IRON SUCROSE
     Indication: IRON DEFICIENCY ANAEMIA
     Dosage: 40 MG, QWK
     Route: 042
     Dates: start: 20160622
  22. NEXIUM [Concomitant]
     Active Substance: ESOMEPRAZOLE MAGNESIUM
     Indication: CHRONIC GASTRITIS
     Dosage: 20 MG, QD
     Route: 048
  23. ADALAT [Concomitant]
     Active Substance: NIFEDIPINE
     Indication: HYPERTENSION
     Dosage: 40 MG, BID
     Route: 048

REACTIONS (3)
  - Rib fracture [Recovering/Resolving]
  - Constipation [Recovered/Resolved]
  - Pneumothorax traumatic [Recovered/Resolved]

NARRATIVE: CASE EVENT DATE: 20160425
